FAERS Safety Report 24137132 (Version 1)
Quarter: 2024Q3

REPORT INFORMATION
  Report Type: Spontaneous
  Country: JP (occurrence: JP)
  Receive Date: 20240725
  Receipt Date: 20240725
  Transmission Date: 20241016
  Serious: Yes (Death, Hospitalization)
  Sender: BAYER
  Company Number: JP-BAYER-2024A094957

PATIENT

DRUGS (1)
  1. NUBEQA [Suspect]
     Active Substance: DAROLUTAMIDE
     Dosage: UNK
     Route: 048
     Dates: end: 20240701

REACTIONS (3)
  - Death [Fatal]
  - Hospitalisation [None]
  - Dysphagia [None]

NARRATIVE: CASE EVENT DATE: 20240701
